FAERS Safety Report 23709411 (Version 1)
Quarter: 2024Q2

REPORT INFORMATION
  Report Type: Spontaneous
  Country: GB (occurrence: GB)
  Receive Date: 20240404
  Receipt Date: 20240404
  Transmission Date: 20240715
  Serious: Yes (Hospitalization)
  Sender: FDA-Public Use
  Company Number: GB-ANIPHARMA-2024-UK-000066

PATIENT
  Age: 86 Year
  Sex: Male

DRUGS (8)
  1. CANDESARTAN [Suspect]
     Active Substance: CANDESARTAN
     Indication: Product used for unknown indication
     Dosage: 2 MG DAILY
     Dates: end: 20240125
  2. FUROSEMIDE [Suspect]
     Active Substance: FUROSEMIDE
     Dosage: DOSE TEXT: 40MG DAILY
     Dates: end: 20240125
  3. CYANOCOBALAMIN [Concomitant]
     Active Substance: CYANOCOBALAMIN
  4. GABAPENTIN [Concomitant]
     Active Substance: GABAPENTIN
  5. METFORMIN [Concomitant]
     Active Substance: METFORMIN HYDROCHLORIDE
  6. NIZATIDINE [Concomitant]
     Active Substance: NIZATIDINE
  7. FERROUS SULFATE [Concomitant]
     Active Substance: FERROUS SULFATE
  8. DILTIAZEM HYDROCHLORIDE [Concomitant]
     Active Substance: DILTIAZEM HYDROCHLORIDE

REACTIONS (3)
  - Medication error [Unknown]
  - Anaemia [Recovered/Resolved]
  - Acute kidney injury [Recovering/Resolving]

NARRATIVE: CASE EVENT DATE: 20240125
